FAERS Safety Report 18878959 (Version 1)
Quarter: 2021Q1

REPORT INFORMATION
  Report Type: Other
  Country: CN (occurrence: CN)
  Receive Date: 20210211
  Receipt Date: 20210211
  Transmission Date: 20210420
  Serious: Yes (Life-Threatening, Other)
  Sender: FDA-Public Use
  Company Number: CN-ROCHE-2761495

PATIENT

DRUGS (11)
  1. BEVACIZUMAB. [Suspect]
     Active Substance: BEVACIZUMAB
     Indication: METASTATIC NEOPLASM
     Route: 042
  2. TORIPALIMAB. [Suspect]
     Active Substance: TORIPALIMAB
     Indication: METASTATIC NEOPLASM
     Route: 042
  3. OXALIPLATIN. [Suspect]
     Active Substance: OXALIPLATIN
     Indication: METASTATIC NEOPLASM
     Route: 042
  4. NIVOLUMAB [Suspect]
     Active Substance: NIVOLUMAB
     Indication: METASTATIC NEOPLASM
     Route: 042
  5. PEMBROLIZUMAB. [Suspect]
     Active Substance: PEMBROLIZUMAB
     Indication: METASTATIC NEOPLASM
     Route: 042
  6. MANGANESE CHLORIDE [Suspect]
     Active Substance: MANGANESE CHLORIDE
     Indication: METASTATIC NEOPLASM
     Dosage: ARM 1: MANGANESE CHLORIDE ADMINISTERED INTRANASALLY DAILY AT 3 DOSE LEVELS (0.05, 0.1 OR 0.2 MG/KG/D
     Route: 045
  7. CAMRELIZUMAB [Suspect]
     Active Substance: CAMRELIZUMAB
     Indication: METASTATIC NEOPLASM
     Route: 042
  8. FLUOROURACIL. [Suspect]
     Active Substance: FLUOROURACIL
     Indication: METASTATIC NEOPLASM
     Route: 042
  9. LENVATINIB [Suspect]
     Active Substance: LENVATINIB
     Indication: METASTATIC NEOPLASM
     Route: 042
  10. FOLINIC ACID [Suspect]
     Active Substance: LEUCOVORIN
     Indication: METASTATIC NEOPLASM
     Route: 042
  11. IRINOTECAN [Suspect]
     Active Substance: IRINOTECAN
     Indication: METASTATIC NEOPLASM
     Route: 042

REACTIONS (6)
  - Neutropenia [Recovered/Resolved]
  - Ascites [Recovered/Resolved]
  - Thrombocytopenia [Recovered/Resolved]
  - Hydrothorax [Recovered/Resolved]
  - Ileus [Recovered/Resolved]
  - Vomiting [Recovered/Resolved]
